FAERS Safety Report 15566037 (Version 1)
Quarter: 2018Q4

REPORT INFORMATION
  Report Type: Spontaneous
  Country: US (occurrence: US)
  Receive Date: 20181025
  Receipt Date: 20181025
  Transmission Date: 20190205
  Serious: No
  Sender: FDA-Public Use
  Company Number: None

PATIENT
  Sex: Female

DRUGS (2)
  1. FORTEO [Suspect]
     Active Substance: TERIPARATIDE
     Indication: OSTEOPOROSIS
     Dosage: AS DIRECTED
     Route: 058
     Dates: start: 201703
  2. FORTEO [Suspect]
     Active Substance: TERIPARATIDE
     Indication: ARTERITIS
     Dosage: AS DIRECTED
     Route: 058
     Dates: start: 201703

REACTIONS (1)
  - Lung infection [None]
